FAERS Safety Report 6717408-1 (Version None)
Quarter: 2010Q2

REPORT INFORMATION
  Report Type: 
  Country: None (occurrence: None)
  Receive Date: 20100510
  Receipt Date: 20100506
  Transmission Date: 20101027
  Serious: Yes (Hospitalization)
  Sender: FDA-Public Use
  Company Number: BR-ROCHE-328419

PATIENT
  Sex: Male
  Weight: 84 kg

DRUGS (12)
  1. DIAZEPAM [Suspect]
     Indication: DRUG USE FOR UNKNOWN INDICATION
     Route: 065
     Dates: start: 19670101
  2. LEXOTAN [Suspect]
     Dosage: OTHER INDICATION: ANXIETY CRISIS
     Route: 065
     Dates: start: 19670101, end: 19670101
  3. VALIUM [Suspect]
     Indication: DRUG USE FOR UNKNOWN INDICATION
     Route: 065
     Dates: start: 20100401, end: 20100506
  4. BACTRIM-F [Suspect]
     Dosage: 2 TABLET /DAY
     Route: 048
     Dates: start: 20021201, end: 20021201
  5. BROMAZEPAM [Suspect]
     Indication: DRUG USE FOR UNKNOWN INDICATION
     Route: 065
  6. MOTILIUM [Concomitant]
     Dosage: DOSE: 10 MG, TAKEN FOR DIGESTION
  7. ENALAPRIL MALEATE [Concomitant]
     Indication: BLOOD PRESSURE ABNORMAL
     Dosage: DOSE: 5 MG
  8. ALFUZOSIN HCL [Concomitant]
     Route: 048
  9. TRIMETHOPRIME [Concomitant]
     Route: 048
  10. LORAX [Concomitant]
  11. ALPRAZOLAM [Concomitant]
  12. DIENPAX [Concomitant]
     Dates: start: 19670101

REACTIONS (9)
  - DIZZINESS [None]
  - DRUG DEPENDENCE [None]
  - DYSURIA [None]
  - GASTRITIS [None]
  - HYPERTENSION [None]
  - INTERVERTEBRAL DISC PROTRUSION [None]
  - PROSTATITIS [None]
  - PROSTATOMEGALY [None]
  - URINE OUTPUT INCREASED [None]
